FAERS Safety Report 16383871 (Version 1)
Quarter: 2019Q2

REPORT INFORMATION
  Report Type: Spontaneous
  Country: FR (occurrence: FR)
  Receive Date: 20190603
  Receipt Date: 20190603
  Transmission Date: 20190711
  Serious: Yes (Other)
  Sender: FDA-Public Use
  Company Number: FR-GLAXOSMITHKLINE-FR2019GSK099332

PATIENT
  Sex: Female

DRUGS (2)
  1. NICOPATCH [Suspect]
     Active Substance: NICOTINE
     Indication: SMOKING CESSATION THERAPY
     Dosage: 3 DF, 1D (3 PATCHES DAILY, 21 MG/24 H)
     Route: 062
  2. NICOTINE. [Suspect]
     Active Substance: NICOTINE
     Indication: SMOKING CESSATION THERAPY
     Dosage: 3 DF, 1D (21 MG/24H)
     Route: 062
     Dates: start: 2019

REACTIONS (7)
  - Off label use [Unknown]
  - Application site erythema [Unknown]
  - Application site papules [Unknown]
  - Nicotine dependence [Unknown]
  - Prescribed overdose [Unknown]
  - Application site pruritus [Unknown]
  - Intentional product use issue [Unknown]
